FAERS Safety Report 16551260 (Version 1)
Quarter: 2019Q3

REPORT INFORMATION
  Report Type: Spontaneous
  Country: US (occurrence: US)
  Receive Date: 20190710
  Receipt Date: 20190710
  Transmission Date: 20191004
  Serious: No
  Sender: FDA-Public Use
  Company Number: US-BEH-2019104108

PATIENT
  Sex: Female

DRUGS (1)
  1. HIZENTRA [Suspect]
     Active Substance: HUMAN IMMUNOGLOBULIN G
     Dosage: 10 GRAM / 50 ML, QW OVER 2 SITES
     Route: 065

REACTIONS (5)
  - Infusion site haemorrhage [Unknown]
  - Infusion site swelling [Recovered/Resolved]
  - Chronic sinusitis [Unknown]
  - Headache [Unknown]
  - Nausea [Unknown]
